FAERS Safety Report 9075673 (Version 1)
Quarter: 2013Q1

REPORT INFORMATION
  Report Type: Report from Study
  Country: US (occurrence: US)
  Receive Date: 20130129
  Receipt Date: 20130129
  Transmission Date: 20140127
  Serious: No
  Sender: FDA-Public Use
  Company Number: US-ABBOTT-12P-163-0943559-00

PATIENT
  Age: 30 Year
  Sex: Female

DRUGS (5)
  1. HUMIRA 40 MG/0.8 ML PEN [Suspect]
     Indication: PSORIASIS
     Dates: start: 20120430
  2. PROTONIX [Concomitant]
     Indication: GASTROOESOPHAGEAL REFLUX DISEASE
     Dosage: 40MG DAILY
  3. NEURONTIN [Concomitant]
     Indication: FIBROMYALGIA
  4. ROBAXIN [Concomitant]
     Indication: MUSCLE SPASMS
     Dosage: 750M 1-3X/DAY PRN
  5. ULTRAM [Concomitant]
     Indication: PAIN
     Dosage: 50MG 1-3X/DAY AS NEEDED

REACTIONS (1)
  - Injection site pruritus [Recovering/Resolving]
